FAERS Safety Report 18404439 (Version 1)
Quarter: 2020Q4

REPORT INFORMATION
  Report Type: Spontaneous
  Country: US (occurrence: US)
  Receive Date: 20201020
  Receipt Date: 20201020
  Transmission Date: 20210114
  Serious: Yes (Life-Threatening, Hospitalization, Disabling, Other)
  Sender: FDA-Public Use
  Company Number: US-SA-2020SA292464

PATIENT

DRUGS (10)
  1. CELECOXIB. [Suspect]
     Active Substance: CELECOXIB
     Dosage: 200 MG, QD
  2. GABAPENTIN. [Suspect]
     Active Substance: GABAPENTIN
     Indication: NEURALGIA
     Dosage: 600 MG, QD
     Dates: start: 2010
  3. CLONAZEPAM. [Suspect]
     Active Substance: CLONAZEPAM
     Dosage: 0.5 MG, TID
     Route: 065
  4. RANITIDINE HYDROCHLORIDE. [Suspect]
     Active Substance: RANITIDINE HYDROCHLORIDE
     Indication: GASTROINTESTINAL DISORDER
     Dosage: `UNK UNK, QD
     Dates: start: 2012, end: 2018
  5. OXYCODONE [Suspect]
     Active Substance: OXYCODONE
     Dosage: 10 MG
  6. CLONAZEPAM. [Suspect]
     Active Substance: CLONAZEPAM
     Indication: ANXIETY
     Dosage: 1 MG, QID
     Route: 065
  7. GABAPENTIN. [Suspect]
     Active Substance: GABAPENTIN
     Dosage: 800 MG, TID
     Route: 065
  8. ONDANSETRON [Suspect]
     Active Substance: ONDANSETRON
     Indication: ABDOMINAL PAIN UPPER
     Dosage: 4 MG, TID; AS NEEDED
  9. OXYCODONE [Suspect]
     Active Substance: OXYCODONE
     Dosage: UNK
  10. TOPIRAMATE. [Suspect]
     Active Substance: TOPIRAMATE
     Indication: NEURALGIA
     Dosage: UNK
     Route: 065
     Dates: start: 2010

REACTIONS (20)
  - Dental caries [Unknown]
  - Scratch [Unknown]
  - Stomach mass [Unknown]
  - Dry mouth [Unknown]
  - Depression [Unknown]
  - Near death experience [Unknown]
  - Disability [Unknown]
  - Epilepsy [Recovering/Resolving]
  - Anal incontinence [Unknown]
  - Scab [Unknown]
  - Nausea [Unknown]
  - Memory impairment [Unknown]
  - Road traffic accident [Unknown]
  - Gastric bypass [Unknown]
  - Migraine [Unknown]
  - Tooth loss [Unknown]
  - Feeling abnormal [Unknown]
  - Suicide attempt [Unknown]
  - Scar [Unknown]
  - Frustration tolerance decreased [Unknown]

NARRATIVE: CASE EVENT DATE: 2012
